FAERS Safety Report 9032676 (Version 1)
Quarter: 2013Q1

REPORT INFORMATION
  Report Type: Spontaneous
  Country: US (occurrence: US)
  Receive Date: 20130127
  Receipt Date: 20130127
  Transmission Date: 20140127
  Serious: No
  Sender: FDA-Public Use
  Company Number: US-ALLERGAN-1204781US

PATIENT
  Age: 84 Year
  Sex: Female

DRUGS (8)
  1. COMBIGAN [Suspect]
     Indication: GLAUCOMA
     Dosage: 2 GTT, BID
     Route: 047
     Dates: start: 20120315, end: 20120430
  2. COMBIGAN [Suspect]
     Dosage: UNK
     Dates: start: 20120502
  3. PRED FORTE [Suspect]
     Indication: POSTOPERATIVE CARE
     Dosage: 2 GTT, Q2HR
     Route: 047
     Dates: start: 20120221
  4. METOPROLOL [Concomitant]
     Indication: PRODUCT USED FOR UNKNOWN INDICATION
     Route: 048
  5. CHILDRENS ASA [Concomitant]
     Indication: PRODUCT USED FOR UNKNOWN INDICATION
     Dosage: UNK
     Route: 048
  6. MVI [Concomitant]
     Indication: PRODUCT USED FOR UNKNOWN INDICATION
     Dosage: UNK
     Route: 048
  7. KETOROLAC [Concomitant]
  8. ARTIFICIAL TEARS NOS [Suspect]

REACTIONS (5)
  - Fatigue [Not Recovered/Not Resolved]
  - Fatigue [Not Recovered/Not Resolved]
  - Dizziness [Unknown]
  - Blood pressure increased [Unknown]
  - Asthenia [Unknown]
